FAERS Safety Report 17230474 (Version 3)
Quarter: 2020Q3

REPORT INFORMATION
  Report Type: Spontaneous
  Country: PL (occurrence: PL)
  Receive Date: 20200103
  Receipt Date: 20200713
  Transmission Date: 20201102
  Serious: Yes (Death, Other)
  Sender: FDA-Public Use
  Company Number: PL-RECORDATI RARE DISEASES INC.-PL-R13005-19-00361

PATIENT
  Age: 12 Month
  Sex: Male

DRUGS (9)
  1. DACTINOMYCIN [Suspect]
     Active Substance: DACTINOMYCIN
     Indication: FIBROMATOSIS
     Dosage: THREE I3VA COURSES
     Route: 065
  2. IMATINIB. [Suspect]
     Active Substance: IMATINIB MESYLATE
     Indication: DESMOID TUMOUR
     Route: 065
  3. METHOTREXATE. [Suspect]
     Active Substance: METHOTREXATE
     Indication: DESMOID TUMOUR
     Route: 065
  4. DICLOFENAC [Suspect]
     Active Substance: DICLOFENAC
     Indication: DESMOID TUMOUR
     Route: 065
  5. VINCRISTINE [Suspect]
     Active Substance: VINCRISTINE
     Indication: DESMOID TUMOUR
     Route: 065
  6. VINCRISTINE [Suspect]
     Active Substance: VINCRISTINE
     Indication: FIBROMATOSIS
  7. TAMOXIFEN [Suspect]
     Active Substance: TAMOXIFEN
     Indication: DESMOID TUMOUR
     Route: 065
  8. DACTINOMYCIN [Suspect]
     Active Substance: DACTINOMYCIN
     Indication: FIBROMATOSIS
  9. VINBLASTINE SULFATE. [Suspect]
     Active Substance: VINBLASTINE SULFATE
     Indication: DESMOID TUMOUR
     Route: 065

REACTIONS (5)
  - Desmoid tumour [Fatal]
  - Off label use [Fatal]
  - Malignant neoplasm progression [Fatal]
  - Multiple-drug resistance [Fatal]
  - Drug ineffective for unapproved indication [Fatal]
